FAERS Safety Report 23262639 (Version 1)
Quarter: 2023Q4

REPORT INFORMATION
  Report Type: Spontaneous
  Country: US (occurrence: None)
  Receive Date: 20231204
  Receipt Date: 20231204
  Transmission Date: 20240110
  Serious: Yes (Hospitalization)
  Sender: FDA-Public Use
  Company Number: None

PATIENT
  Sex: Female

DRUGS (4)
  1. OPSUMIT [Suspect]
     Active Substance: MACITENTAN
     Indication: Pulmonary arterial hypertension
     Dosage: FREQUENCY : DAILY;?
     Route: 048
     Dates: start: 201611
  2. SILDENAFIL CITRATE [Concomitant]
     Active Substance: SILDENAFIL CITRATE
  3. C-TREPROSTINIL RM [Concomitant]
  4. RETACRIT [Concomitant]
     Active Substance: EPOETIN ALFA-EPBX

REACTIONS (4)
  - Disease progression [None]
  - Pulmonary arterial hypertension [None]
  - Dyspnoea [None]
  - Rectal haemorrhage [None]
